FAERS Safety Report 6271421-X (Version None)
Quarter: 2009Q3

REPORT INFORMATION
  Report Type: 
  Country: None (occurrence: None)
  Receive Date: 20090715
  Receipt Date: 20090715
  Transmission Date: 20100115
  Serious: Yes (Death)
  Sender: FDA-Public Use
  Company Number: None

PATIENT
  Sex: Male
  Weight: 85.7298 kg

DRUGS (5)
  1. NILOTINIB [Suspect]
     Indication: GASTROINTESTINAL STROMAL TUMOUR
     Dosage: 400MG PO BID X 28 DAYS
     Route: 048
     Dates: start: 20090611, end: 20090622
  2. DEXAMETHASONE [Concomitant]
  3. OXYCODONE [Concomitant]
  4. OXYCONTIN [Concomitant]
  5. HYDROMORPHONE HCL [Concomitant]

REACTIONS (6)
  - APNOEA [None]
  - CARDIAC ARREST [None]
  - DISEASE PROGRESSION [None]
  - HYPOVENTILATION [None]
  - LOSS OF CONSCIOUSNESS [None]
  - MIOSIS [None]
